FAERS Safety Report 25529121 (Version 1)
Quarter: 2025Q3

REPORT INFORMATION
  Report Type: Spontaneous
  Country: US (occurrence: None)
  Receive Date: 20250707
  Receipt Date: 20250707
  Transmission Date: 20251020
  Serious: Yes (Hospitalization)
  Sender: FDA-CTU
  Company Number: None

PATIENT
  Age: 89 Year
  Sex: Female
  Weight: 64.2 kg

DRUGS (21)
  1. AUGMENTIN [Suspect]
     Active Substance: AMOXICILLIN\CLAVULANATE POTASSIUM
     Indication: Diverticulitis
     Dosage: FREQUENCY : TWICE A DAY;?
     Route: 048
     Dates: start: 20250520, end: 20250531
  2. ACETAMINOPHEN [Concomitant]
     Active Substance: ACETAMINOPHEN
  3. AMLODIPINE (OLMESARTAN) [Concomitant]
  4. ASCORBIC ACID [Concomitant]
     Active Substance: ASCORBIC ACID
  5. CALCIUM [Concomitant]
     Active Substance: CALCIUM
  6. CALCIUM CARBONATE [Concomitant]
     Active Substance: CALCIUM CARBONATE
  7. CETIRIZINE [Concomitant]
     Active Substance: CETIRIZINE HYDROCHLORIDE
  8. VITAMINS [Concomitant]
     Active Substance: VITAMINS
  9. DICLOFENAC [Concomitant]
     Active Substance: DICLOFENAC
  10. FE BISGLY-VIT C-VIT B-FA [Concomitant]
  11. FLUOXETINE [Concomitant]
     Active Substance: FLUOXETINE HYDROCHLORIDE
  12. FLUTICASONE - VILANTEROL [Concomitant]
  13. FUROSEMIDE [Concomitant]
     Active Substance: FUROSEMIDE
  14. GABAPENTIN [Concomitant]
     Active Substance: GABAPENTIN
  15. JARDIANCE [Concomitant]
     Active Substance: EMPAGLIFLOZIN
  16. LEVOTHYROXINE [Concomitant]
     Active Substance: LEVOTHYROXINE
  17. METOPROLOL [Concomitant]
     Active Substance: METOPROLOL
  18. RIVAROXABAN [Concomitant]
     Active Substance: RIVAROXABAN
  19. TORSEMIDE [Concomitant]
     Active Substance: TORSEMIDE
  20. VENLAFAXINE [Concomitant]
     Active Substance: VENLAFAXINE HYDROCHLORIDE
  21. ZOLPIDEM TARTRATE [Concomitant]
     Active Substance: ZOLPIDEM TARTRATE

REACTIONS (5)
  - Diarrhoea [None]
  - Hypokalaemia [None]
  - Asthenia [None]
  - Culture positive [None]
  - Clostridium difficile infection [None]

NARRATIVE: CASE EVENT DATE: 20250701
